FAERS Safety Report 9564995 (Version 2)
Quarter: 2014Q1

REPORT INFORMATION
  Report Type: Spontaneous
  Country: US (occurrence: US)
  Receive Date: 20130930
  Receipt Date: 20140127
  Transmission Date: 20141002
  Serious: Yes (Hospitalization)
  Sender: FDA-Public Use
  Company Number: US-UCBSA-098458

PATIENT
  Age: 58 Year
  Sex: Female
  Weight: 88.45 kg

DRUGS (19)
  1. CIMZIA [Suspect]
     Indication: RHEUMATOID ARTHRITIS
     Dates: start: 201212
  2. CIMZIA [Suspect]
     Indication: RHEUMATOID ARTHRITIS
     Dates: start: 201304, end: 20130722
  3. CIMZIA [Suspect]
     Indication: RHEUMATOID ARTHRITIS
     Dosage: RESTARTED
     Dates: start: 201310
  4. AUGMENTIN [Suspect]
     Indication: BRONCHITIS
     Dates: start: 2013
  5. ZERTEC [Concomitant]
  6. SULFASALAZINE [Concomitant]
  7. WELBUTIN [Concomitant]
     Indication: FIBROMYALGIA
  8. GABAPENTIN [Concomitant]
  9. PREVACID [Concomitant]
  10. LOPRESSOR [Concomitant]
  11. LEVOTHROXINE [Concomitant]
  12. DIFLUCAN [Concomitant]
     Indication: ANAL PRURITUS
     Dosage: PRN
  13. AMBIEN [Concomitant]
     Dosage: PRN
  14. RAFAXIMIN [Concomitant]
     Indication: ANAL PRURITUS
     Dates: start: 201307
  15. RAFAXIMIN [Concomitant]
     Indication: ABDOMINAL PAIN
     Dates: start: 201307
  16. FLAGYL [Concomitant]
  17. EPIPEN [Concomitant]
     Indication: RASH PRURITIC
  18. HYDROXYZINE [Concomitant]
     Indication: CHEST DISCOMFORT
  19. HYDROXYZINE [Concomitant]
     Indication: RASH PRURITIC

REACTIONS (12)
  - Abdominal pain [Not Recovered/Not Resolved]
  - Cholecystectomy [Recovering/Resolving]
  - Bronchitis [Recovered/Resolved]
  - Atelectasis [Recovering/Resolving]
  - Dermatitis psoriasiform [Not Recovered/Not Resolved]
  - Rash pruritic [Recovered/Resolved]
  - Butterfly rash [Unknown]
  - Chest discomfort [Recovered/Resolved]
  - Diarrhoea [Not Recovered/Not Resolved]
  - Nausea [Recovered/Resolved]
  - Arthralgia [Unknown]
  - Anal pruritus [Not Recovered/Not Resolved]
